FAERS Safety Report 25199454 (Version 2)
Quarter: 2025Q2

REPORT INFORMATION
  Report Type: Spontaneous
  Country: JP (occurrence: JP)
  Receive Date: 20250415
  Receipt Date: 20250430
  Transmission Date: 20250717
  Serious: Yes (Hospitalization)
  Sender: Phathom Pharmaceuticals
  Company Number: JP-PHATHOM PHARMACEUTICALS INC.-2025PHT00757

PATIENT
  Sex: Male

DRUGS (1)
  1. AMOXICILLIN\CLARITHROMYCIN\VONOPRAZAN FUMURATE [Suspect]
     Active Substance: AMOXICILLIN\CLARITHROMYCIN\VONOPRAZAN FUMURATE
     Indication: Helicobacter infection
     Route: 048

REACTIONS (1)
  - Abdominal pain [Recovered/Resolved]
